FAERS Safety Report 24070065 (Version 2)
Quarter: 2024Q3

REPORT INFORMATION
  Report Type: Spontaneous
  Country: CN (occurrence: CN)
  Receive Date: 20240710
  Receipt Date: 20240710
  Transmission Date: 20241016
  Serious: No
  Sender: ROCHE
  Company Number: CN-ROCHE-3571687

PATIENT
  Age: 71 Year
  Sex: Male

DRUGS (2)
  1. VABYSMO [Suspect]
     Active Substance: FARICIMAB\FARICIMAB-SVOA
     Indication: Neovascular age-related macular degeneration
     Dosage: 22/MAR/2024 FOR FIRST DOSE, 22/APR/2024 FOR SECOND DOSE
     Route: 065
     Dates: start: 20240322
  2. RANIBIZUMAB [Concomitant]
     Active Substance: RANIBIZUMAB

REACTIONS (1)
  - Vitreous opacities [Not Recovered/Not Resolved]

NARRATIVE: CASE EVENT DATE: 20240423
